FAERS Safety Report 20233768 (Version 1)
Quarter: 2021Q4

REPORT INFORMATION
  Report Type: Spontaneous
  Country: US (occurrence: None)
  Receive Date: 20211227
  Receipt Date: 20211227
  Transmission Date: 20220303
  Serious: No
  Sender: FDA-Public Use
  Company Number: None

PATIENT
  Age: 24 Year
  Sex: Female

DRUGS (2)
  1. REGEN-COV [Suspect]
     Active Substance: CASIRIVIMAB\IMDEVIMAB
     Indication: COVID-19
     Dosage: OTHER FREQUENCY : ONCE;?
     Route: 042
     Dates: start: 20211221, end: 20211221
  2. Normal Saline 0.9% [Concomitant]
     Dates: start: 20211221, end: 20211221

REACTIONS (5)
  - Flushing [None]
  - Infusion related reaction [None]
  - Feeling hot [None]
  - Nausea [None]
  - Presyncope [None]

NARRATIVE: CASE EVENT DATE: 20211221
